FAERS Safety Report 17953365 (Version 1)
Quarter: 2020Q2

REPORT INFORMATION
  Report Type: Spontaneous
  Country: IE (occurrence: IE)
  Receive Date: 20200628
  Receipt Date: 20200628
  Transmission Date: 20200714
  Serious: Yes (Life-Threatening)
  Sender: FDA-Public Use
  Company Number: IE-JNJFOC-20200626281

PATIENT
  Age: 85 Year
  Sex: Male

DRUGS (4)
  1. FLUCLOXACILLIN                     /00239102/ [Suspect]
     Active Substance: FLUCLOXACILLIN SODIUM
     Indication: ARTHRITIS BACTERIAL
     Dosage: 2 G EVERY 4 HOURS
     Route: 042
     Dates: start: 20191015, end: 20191120
  2. PARACETAMOL [Suspect]
     Active Substance: ACETAMINOPHEN
     Indication: PRODUCT USED FOR UNKNOWN INDICATION
     Route: 042
  3. PARACETAMOL [Suspect]
     Active Substance: ACETAMINOPHEN
     Indication: PAIN
     Dosage: PO/IV 1 GRAM 4 TIMES A DAY
     Route: 048
     Dates: start: 20191015, end: 20191120
  4. FLUCLOXACILLIN                     /00239102/ [Suspect]
     Active Substance: FLUCLOXACILLIN SODIUM
     Indication: STAPHYLOCOCCAL BACTERAEMIA

REACTIONS (2)
  - Metabolic acidosis [Recovered/Resolved]
  - Pyroglutamic acidosis [Recovered/Resolved]

NARRATIVE: CASE EVENT DATE: 20191120
